FAERS Safety Report 7121960-4 (Version None)
Quarter: 2010Q4

REPORT INFORMATION
  Report Type: 
  Country: None (occurrence: None)
  Receive Date: 20101124
  Receipt Date: 20101116
  Transmission Date: 20110411
  Serious: Yes (Hospitalization)
  Sender: FDA-Public Use
  Company Number: A0775944A

PATIENT
  Age: 49 Year
  Sex: Female

DRUGS (4)
  1. AVANDAMET [Suspect]
     Route: 048
     Dates: start: 20030701, end: 20041222
  2. AVANDIA [Suspect]
     Dosage: 2MG PER DAY
     Route: 048
     Dates: start: 20050527, end: 20070814
  3. DEPAKOTE [Concomitant]
  4. TOPROL-XL [Concomitant]

REACTIONS (2)
  - CARDIAC FAILURE CONGESTIVE [None]
  - CARDIOMYOPATHY [None]
